FAERS Safety Report 26146758 (Version 1)
Quarter: 2025Q4

REPORT INFORMATION
  Report Type: Spontaneous
  Country: EU (occurrence: EU)
  Receive Date: 20251211
  Receipt Date: 20251211
  Transmission Date: 20260117
  Serious: Yes (Hospitalization, Other)
  Sender: ACS DOBFAR
  Company Number: None

PATIENT
  Age: 66 Year
  Sex: Female
  Weight: 74 kg

DRUGS (7)
  1. PIPERACILLIN SODIUM\TAZOBACTAM SODIUM [Suspect]
     Active Substance: PIPERACILLIN SODIUM\TAZOBACTAM SODIUM
     Indication: Device related infection
     Dosage: ()
     Route: 042
     Dates: start: 20251102, end: 20251103
  2. PIPERACILLIN SODIUM\TAZOBACTAM SODIUM [Suspect]
     Active Substance: PIPERACILLIN SODIUM\TAZOBACTAM SODIUM
     Indication: Device related infection
     Route: 041
     Dates: start: 20251015, end: 20251025
  3. MEROPENEM [Suspect]
     Active Substance: MEROPENEM
     Indication: Device related infection
     Route: 041
     Dates: start: 20251025, end: 20251101
  4. DAPTOMYCINE MEDAC 350 mg, poudre pour solution injectable/pour perf... [Concomitant]
     Dosage: 10MG/KG/J ()
     Route: 042
     Dates: start: 20251015
  5. NEBIVOLOL [Concomitant]
     Active Substance: NEBIVOLOL
  6. ESOMEPRAZOLE [Concomitant]
     Active Substance: ESOMEPRAZOLE
  7. LOVENOX [Concomitant]
     Active Substance: ENOXAPARIN SODIUM

REACTIONS (5)
  - Acquired factor V deficiency [Recovering/Resolving]
  - Anti factor V antibody positive [Not Recovered/Not Resolved]
  - Thrombocytopenia [Recovering/Resolving]
  - Anaemia [Not Recovered/Not Resolved]
  - Off label use [Unknown]

NARRATIVE: CASE EVENT DATE: 20251001
